FAERS Safety Report 4459839-9 (Version None)
Quarter: 2004Q3

REPORT INFORMATION
  Report Type: 
  Country: None (occurrence: None)
  Receive Date: 20040927
  Receipt Date: 20040920
  Transmission Date: 20050211
  Serious: Yes (Other)
  Sender: FDA-Public Use
  Company Number: CIO04020970

PATIENT
  Age: 30 Year
  Sex: Male

DRUGS (1)
  1. CREST W/ FLUORIDE [Suspect]
     Dosage: 1 APPLIC, 1 ONLY FOR 1 DAY, INTRAORAL
     Route: 048
     Dates: start: 20040913, end: 20040913

REACTIONS (3)
  - DYSPNOEA [None]
  - HYPOAESTHESIA ORAL [None]
  - OEDEMA [None]
